FAERS Safety Report 8803863 (Version 5)
Quarter: 2013Q1

REPORT INFORMATION
  Report Type: Report from Study
  Country: DE (occurrence: DE)
  Receive Date: 20120924
  Receipt Date: 20130305
  Transmission Date: 20140127
  Serious: Yes (Death, Hospitalization, Other)
  Sender: FDA-Public Use
  Company Number: PHHY2012DE082502

PATIENT
  Age: 79 Year
  Sex: Male
  Weight: 86 kg

DRUGS (6)
  1. AMN107 [Suspect]
     Indication: CHRONIC MYELOID LEUKAEMIA
     Dosage: 800 MG, QD
     Route: 048
     Dates: start: 20110830, end: 201209
  2. AMN107 [Suspect]
     Dosage: 600 MG, QD
     Route: 048
     Dates: start: 20120131, end: 20120918
  3. AMN107 [Suspect]
     Dosage: 300 MG, QD
     Route: 048
     Dates: start: 20120918, end: 20120929
  4. ERYTHROCYTE CONCENTRATE [Concomitant]
     Dates: start: 20110907
  5. FERINJECT [Concomitant]
     Dates: start: 20120110
  6. MARCUMAR [Concomitant]

REACTIONS (11)
  - Neoplasm progression [Fatal]
  - Malignant neoplasm progression [Fatal]
  - General physical health deterioration [Fatal]
  - Ulcer haemorrhage [Unknown]
  - Melaena [Recovered/Resolved]
  - Osteomyelitis [Recovered/Resolved]
  - Bone pain [Recovered/Resolved]
  - Arthralgia [Recovered/Resolved]
  - Renal function test abnormal [Not Recovered/Not Resolved]
  - Arthropathy [Not Recovered/Not Resolved]
  - Fatigue [Not Recovered/Not Resolved]
